FAERS Safety Report 8386478-X (Version None)
Quarter: 2012Q2

REPORT INFORMATION
  Report Type: 
  Country: None (occurrence: None)
  Receive Date: 20120523
  Receipt Date: 20120514
  Transmission Date: 20120825
  Serious: Yes (Disabling, Other)
  Sender: FDA-Public Use
  Company Number: 2008JP001233

PATIENT
  Age: 39 Year
  Sex: Female
  Weight: 61 kg

DRUGS (29)
  1. TACROLIMUS [Suspect]
     Indication: LUPUS NEPHRITIS
     Dosage: SEE IMAGE
     Route: 048
     Dates: start: 20070213, end: 20080218
  2. TACROLIMUS [Suspect]
     Indication: LUPUS NEPHRITIS
     Dosage: SEE IMAGE
     Route: 048
     Dates: start: 20081204, end: 20090527
  3. TACROLIMUS [Suspect]
     Indication: LUPUS NEPHRITIS
     Dosage: SEE IMAGE
     Route: 048
     Dates: start: 20100805, end: 20101027
  4. TACROLIMUS [Suspect]
     Indication: LUPUS NEPHRITIS
     Dosage: SEE IMAGE
     Route: 048
     Dates: start: 20090827, end: 20100517
  5. TACROLIMUS [Suspect]
     Indication: LUPUS NEPHRITIS
     Dosage: SEE IMAGE
     Route: 048
     Dates: start: 20100518, end: 20100804
  6. TACROLIMUS [Suspect]
     Indication: LUPUS NEPHRITIS
     Dosage: SEE IMAGE
     Route: 048
     Dates: start: 20090528, end: 20090826
  7. TACROLIMUS [Suspect]
     Indication: LUPUS NEPHRITIS
     Dosage: SEE IMAGE
     Route: 048
     Dates: start: 20080313, end: 20080822
  8. DOXAZOSIN MESYLATE [Concomitant]
  9. SULFAMETHOXAZOLE AND TRIMETHOPRIM [Concomitant]
  10. FERRUM (FERROUS FUMARATE) [Concomitant]
  11. EPADEL-S (ETHYL ICOSAPENTATE) [Concomitant]
  12. ADALAT [Concomitant]
  13. PREDNISOLONE [Suspect]
     Indication: LUPUS NEPHRITIS
     Dosage: 10 MG, D, ORAL
     Route: 048
     Dates: start: 20070130, end: 20070212
  14. PREDNISOLONE [Suspect]
     Indication: LUPUS NEPHRITIS
     Dosage: 10 MG, D, ORAL
     Route: 048
     Dates: start: 20070614, end: 20080312
  15. PREDNISOLONE [Suspect]
     Indication: LUPUS NEPHRITIS
     Dosage: 10 MG, D, ORAL
     Route: 048
     Dates: start: 20070112, end: 20070125
  16. PREDNISOLONE [Suspect]
     Indication: LUPUS NEPHRITIS
     Dosage: 10 MG, D, ORAL
     Route: 048
     Dates: start: 20070126, end: 20070129
  17. PREDNISOLONE [Suspect]
     Indication: LUPUS NEPHRITIS
     Dosage: 10 MG, D, ORAL
     Route: 048
     Dates: start: 20080826, end: 20081020
  18. PREDNISOLONE [Suspect]
     Indication: LUPUS NEPHRITIS
     Dosage: 10 MG, D, ORAL
     Route: 048
     Dates: start: 20070213, end: 20070303
  19. PREDNISOLONE [Suspect]
     Indication: LUPUS NEPHRITIS
     Dosage: 10 MG, D, ORAL
     Route: 048
     Dates: start: 20080312, end: 20080730
  20. PREDNISOLONE [Suspect]
     Indication: LUPUS NEPHRITIS
     Dosage: 10 MG, D, ORAL
     Route: 048
     Dates: start: 20080731, end: 20080825
  21. PREDNISOLONE [Suspect]
     Indication: LUPUS NEPHRITIS
     Dosage: 10 MG, D, ORAL
     Route: 048
     Dates: start: 20020901
  22. PREDNISOLONE [Suspect]
     Indication: LUPUS NEPHRITIS
     Dosage: 10 MG, D, ORAL
     Route: 048
     Dates: start: 20070304, end: 20070613
  23. SELBED (TEPRENONE) [Concomitant]
  24. LEVOFLOXACIN [Concomitant]
  25. RELIFEN (NABUMETONE) [Concomitant]
  26. CANDESARTAN CILEXETIL [Concomitant]
  27. PANSOPORIN (CEFOTIAM HYDROCHLORIDE) [Concomitant]
  28. BEZATOL (BEZAFIBRATE) [Concomitant]
  29. PERSANTIN [Concomitant]

REACTIONS (9)
  - PYELONEPHRITIS [None]
  - PANNICULITIS [None]
  - RENAL FAILURE CHRONIC [None]
  - NEPHROGENIC ANAEMIA [None]
  - NEPHROTIC SYNDROME [None]
  - OSTEONECROSIS [None]
  - ENTERITIS INFECTIOUS [None]
  - LUPUS NEPHRITIS [None]
  - AUTOIMMUNE DISORDER [None]
